FAERS Safety Report 5659567-8 (Version None)
Quarter: 2008Q1

REPORT INFORMATION
  Report Type: 
  Country: None (occurrence: None)
  Receive Date: 20080311
  Receipt Date: 20080303
  Transmission Date: 20080703
  Serious: Yes (Death)
  Sender: FDA-Public Use
  Company Number: ES-AVENTIS-200810968EU

PATIENT
  Age: 67 Year
  Sex: Female

DRUGS (4)
  1. SEGURIL                            /00032601/ [Suspect]
     Indication: CARDIAC FAILURE
     Route: 048
     Dates: start: 20071127, end: 20071206
  2. CHLORTHALIDONE [Suspect]
     Indication: CARDIAC FAILURE
     Route: 048
     Dates: start: 20071130, end: 20071206
  3. DIGOXIN [Suspect]
     Indication: ATRIAL FIBRILLATION
     Route: 048
     Dates: start: 20071130, end: 20071206
  4. CHLORTHALIDONE [Concomitant]
     Route: 048
     Dates: start: 20071127, end: 20071130

REACTIONS (1)
  - COLITIS ISCHAEMIC [None]
